FAERS Safety Report 8154428-7 (Version None)
Quarter: 2012Q1

REPORT INFORMATION
  Report Type: 
  Country: None (occurrence: None)
  Receive Date: 20120221
  Receipt Date: 20120208
  Transmission Date: 20120608
  Serious: Yes (Other)
  Sender: FDA-Public Use
  Company Number: US-MYLANLABS-2012S1003508

PATIENT
  Sex: Female

DRUGS (10)
  1. LASIX [Concomitant]
  2. BENICAR HCT [Concomitant]
  3. TYLOX [Concomitant]
  4. DIGOXIN [Suspect]
     Route: 048
     Dates: start: 20071015, end: 20080825
  5. KLOR-CON [Concomitant]
  6. NORVASC [Concomitant]
  7. COREG CR [Concomitant]
  8. PAIN RELIEVER [Concomitant]
     Route: 048
  9. WARFARIN SODIUM [Concomitant]
  10. AMIODARONE HCL [Concomitant]

REACTIONS (7)
  - SINUS BRADYCARDIA [None]
  - ANTICOAGULANT THERAPY [None]
  - ANGIOEDEMA [None]
  - ATRIAL FIBRILLATION [None]
  - IMPLANTABLE DEFIBRILLATOR INSERTION [None]
  - BLOODY DISCHARGE [None]
  - PALPITATIONS [None]
